FAERS Safety Report 5827241-0 (Version None)
Quarter: 2008Q3

REPORT INFORMATION
  Report Type: 
  Country: None (occurrence: None)
  Receive Date: 20080730
  Receipt Date: 20080723
  Transmission Date: 20090109
  Serious: Yes (Other)
  Sender: FDA-Public Use
  Company Number: GB-ROCHE-577673

PATIENT
  Sex: Male
  Weight: 112.4 kg

DRUGS (11)
  1. ORLISTAT [Suspect]
     Indication: OBESITY
     Route: 048
     Dates: start: 20080227, end: 20080623
  2. ORLISTAT [Suspect]
     Route: 048
     Dates: start: 20080723
  3. SIMVASTATIN [Concomitant]
     Route: 048
  4. PLAVIX [Concomitant]
     Indication: ANTICOAGULANT THERAPY
     Route: 048
  5. ADIZEM XL [Concomitant]
     Indication: BLOOD PRESSURE
     Route: 048
  6. ATENOLOL [Concomitant]
     Indication: BLOOD PRESSURE
     Route: 048
  7. METFORMIN HCL [Concomitant]
     Route: 048
  8. FUROSEMIDE [Concomitant]
     Route: 048
  9. ASPIRIN [Concomitant]
     Route: 048
  10. AMLOVASC [Concomitant]
     Route: 048
  11. OLMESARTAN MEDOXOMIL [Concomitant]
     Route: 048

REACTIONS (1)
  - CHEST PAIN [None]
